FAERS Safety Report 5611369-4 (Version None)
Quarter: 2008Q1

REPORT INFORMATION
  Report Type: 
  Country: None (occurrence: None)
  Receive Date: 20080201
  Receipt Date: 20080125
  Transmission Date: 20080703
  Serious: Yes (Other)
  Sender: FDA-Public Use
  Company Number: AU-PFIZER INC-2007104850

PATIENT
  Age: 45 Year
  Sex: Male

DRUGS (2)
  1. XALATAN [Suspect]
     Indication: OCULAR HYPERTENSION
     Route: 047
     Dates: start: 20071101, end: 20071203
  2. XALATAN [Suspect]
     Indication: OPEN ANGLE GLAUCOMA

REACTIONS (3)
  - CHEST PAIN [None]
  - ERECTILE DYSFUNCTION [None]
  - PREMATURE EJACULATION [None]
